FAERS Safety Report 21469599 (Version 1)
Quarter: 2022Q4

REPORT INFORMATION
  Report Type: Spontaneous
  Country: US (occurrence: US)
  Receive Date: 20221018
  Receipt Date: 20221018
  Transmission Date: 20230112
  Serious: No
  Sender: FDA-Public Use
  Company Number: US-ADAMAS PHARMA, LLC-2022ADA00831

PATIENT
  Sex: Male

DRUGS (3)
  1. GOCOVRI [Suspect]
     Active Substance: AMANTADINE
     Indication: Dyskinesia
     Dosage: 274 MG, 1X/DAY EVERY NIGHT AT BEDTIME
     Route: 048
     Dates: start: 20201013
  2. SULFAMETHOXAZOLE [Concomitant]
     Active Substance: SULFAMETHOXAZOLE
  3. LEVODOPA [Concomitant]
     Active Substance: LEVODOPA

REACTIONS (10)
  - Abdominal discomfort [Not Recovered/Not Resolved]
  - Diarrhoea [Not Recovered/Not Resolved]
  - Nasal dryness [Not Recovered/Not Resolved]
  - Urinary tract infection [Not Recovered/Not Resolved]
  - Dizziness [Not Recovered/Not Resolved]
  - Insomnia [Not Recovered/Not Resolved]
  - Dry mouth [Not Recovered/Not Resolved]
  - Anxiety [Not Recovered/Not Resolved]
  - Abnormal dreams [Not Recovered/Not Resolved]
  - Hallucination [Not Recovered/Not Resolved]
